FAERS Safety Report 8785228 (Version 1)
Quarter: 2012Q4

REPORT INFORMATION
  Report Type: Report from Study
  Country: CA (occurrence: CA)
  Receive Date: 20120914
  Receipt Date: 20120914
  Transmission Date: 20130627
  Serious: Yes (Other)
  Sender: FDA-Public Use
  Company Number: CA-JNJFOC-20120903563

PATIENT
  Age: 29 Year
  Sex: Female
  Weight: 76 kg

DRUGS (1)
  1. REMICADE [Suspect]
     Indication: CROHN^S DISEASE
     Dosage: 4th infusion to date
     Route: 042

REACTIONS (3)
  - Expressive language disorder [Unknown]
  - Oropharyngeal pain [Unknown]
  - Ear pain [Unknown]
